FAERS Safety Report 5618570-4 (Version None)
Quarter: 2008Q1

REPORT INFORMATION
  Report Type: 
  Country: None (occurrence: None)
  Receive Date: 20080207
  Receipt Date: 20080131
  Transmission Date: 20080703
  Serious: Yes (Hospitalization)
  Sender: FDA-Public Use
  Company Number: US-MERCK-0802USA00278

PATIENT
  Sex: Female

DRUGS (11)
  1. COSOPT [Suspect]
     Indication: GLAUCOMA
     Route: 047
     Dates: start: 19830101
  2. TRAVATAN [Concomitant]
     Route: 065
  3. GLYBURIDE [Concomitant]
     Route: 065
  4. WARFARIN [Concomitant]
     Route: 065
  5. QUINAPRIL HYDROCHLORIDE [Concomitant]
     Route: 065
  6. METOPROLOL [Concomitant]
     Route: 065
  7. ALLOPURINOL [Concomitant]
     Route: 065
  8. SIMVASTATIN [Concomitant]
     Route: 065
  9. LEVOXYL [Concomitant]
     Indication: THYROID DISORDER
     Route: 065
  10. HYDRODIURIL [Concomitant]
     Route: 065
  11. ZOCOR [Concomitant]
     Route: 065

REACTIONS (3)
  - EYE HAEMORRHAGE [None]
  - MUSCULAR WEAKNESS [None]
  - PAIN IN EXTREMITY [None]
